FAERS Safety Report 8802833 (Version 4)
Quarter: 2013Q3

REPORT INFORMATION
  Report Type: Spontaneous
  Country: US (occurrence: US)
  Receive Date: 20120921
  Receipt Date: 20130829
  Transmission Date: 20140515
  Serious: Yes (Hospitalization, Disabling, Other)
  Sender: FDA-Public Use
  Company Number: US-009507513-1209USA004134

PATIENT
  Sex: Female
  Weight: 66.67 kg

DRUGS (8)
  1. FOSAMAX [Suspect]
     Indication: OSTEOPOROSIS
     Dosage: 70 MG, QW
     Route: 048
     Dates: end: 201203
  2. FOSAMAX [Suspect]
     Dosage: 10 MG, QD
     Route: 048
     Dates: start: 20000630
  3. ATENOLOL [Concomitant]
     Indication: HYPERTENSION
     Dosage: 25-50 MG UNK
     Route: 048
     Dates: start: 1980
  4. PREMPRO [Concomitant]
     Indication: POSTMENOPAUSE
     Dosage: 2.5 MG, UNK
     Dates: start: 1988
  5. CALCIUM (UNSPECIFIED) (+) VITAMIN D (UNSPECIFIED) [Concomitant]
     Indication: OSTEOPOROSIS
     Dosage: UNK, TID
     Dates: start: 2000
  6. VITAMINS (UNSPECIFIED) [Concomitant]
     Indication: POSTMENOPAUSE
     Dosage: UNK
     Dates: start: 2000
  7. ZOCOR [Concomitant]
     Indication: HYPERLIPIDAEMIA
     Dosage: 20-40 MG UNK
     Route: 048
  8. VITAMIN D (UNSPECIFIED) [Concomitant]
     Indication: OSTEOPOROSIS
     Dosage: UNK, QD

REACTIONS (14)
  - Intramedullary rod insertion [Unknown]
  - Hysterectomy [Unknown]
  - Pyuria [Unknown]
  - Femur fracture [Not Recovered/Not Resolved]
  - Low turnover osteopathy [Unknown]
  - Alcohol abuse [Unknown]
  - Macular hole [Unknown]
  - Treatment noncompliance [Unknown]
  - Treatment noncompliance [Unknown]
  - Osteopenia [Unknown]
  - Body height decreased [Unknown]
  - Oestrogen deficiency [Unknown]
  - Joint crepitation [Unknown]
  - Hypertension [Unknown]
